FAERS Safety Report 17405905 (Version 1)
Quarter: 2020Q1

REPORT INFORMATION
  Report Type: Spontaneous
  Country: US (occurrence: US)
  Receive Date: 20200212
  Receipt Date: 20200212
  Transmission Date: 20200409
  Serious: Yes (Hospitalization, Other)
  Sender: FDA-Public Use
  Company Number: US-AMGEN-USASP2020019436

PATIENT
  Age: 93 Year
  Sex: Female

DRUGS (2)
  1. ARANESP [Suspect]
     Active Substance: DARBEPOETIN ALFA
     Indication: APLASTIC ANAEMIA
     Dosage: UNK, Q2WK
     Route: 065
     Dates: start: 201905
  2. LEUKINE [Concomitant]
     Active Substance: SARGRAMOSTIM

REACTIONS (7)
  - Femur fracture [Unknown]
  - Asthenia [Unknown]
  - Confusional state [Unknown]
  - Fall [Unknown]
  - Vomiting [Unknown]
  - Off label use [Unknown]
  - Hip fracture [Unknown]

NARRATIVE: CASE EVENT DATE: 201905
